FAERS Safety Report 10355898 (Version 1)
Quarter: 2014Q3

REPORT INFORMATION
  Report Type: Spontaneous
  Country: None (occurrence: TW)
  Receive Date: 20140801
  Receipt Date: 20140801
  Transmission Date: 20150326
  Serious: Yes (Other)
  Sender: FDA-Public Use
  Company Number: TW-ACCORD-025064

PATIENT
  Age: 38 Year
  Sex: Female

DRUGS (2)
  1. PACLITAXEL/PACLITAXEL LIPOSOME [Suspect]
     Active Substance: PACLITAXEL
     Indication: ENDOMETRIAL ADENOCARCINOMA
     Dosage: EVENTS AFTER THE FOURTH COURSE.
  2. CARBOPLATIN BRISTOL MYERS SQUIBB [Suspect]
     Active Substance: CARBOPLATIN
     Indication: ENDOMETRIAL ADENOCARCINOMA
     Dosage: EVENTS AFTER THE FOURTH COURSE

REACTIONS (1)
  - Pneumothorax [Recovered/Resolved]
